FAERS Safety Report 18393756 (Version 1)
Quarter: 2020Q4

REPORT INFORMATION
  Report Type: Spontaneous
  Country: NL (occurrence: NL)
  Receive Date: 20201016
  Receipt Date: 20201016
  Transmission Date: 20210114
  Serious: Yes (Hospitalization)
  Sender: FDA-Public Use
  Company Number: NL-MYLANLABS-2020M1086932

PATIENT
  Age: 53 Year
  Sex: Female
  Weight: 117 kg

DRUGS (10)
  1. AKINETON [Concomitant]
     Active Substance: BIPERIDEN HYDROCHLORIDE
     Dosage: TABLET, 2 MG (MILLIGRAM)
  2. XARELTO [Concomitant]
     Active Substance: RIVAROXABAN
     Dosage: TABLET, 15 MG (MILLIGRAM)
  3. CETOMACROGOL [Concomitant]
     Active Substance: COSMETICS
     Dosage: CREME
  4. HALDOL [Concomitant]
     Active Substance: HALOPERIDOL
     Dosage: TABLET, 10 MG (MILLIGRAM)
  5. ESCITALOPRAM [Suspect]
     Active Substance: ESCITALOPRAM OXALATE
     Indication: BIPOLAR DISORDER
     Dosage: 2 X PER DAG 1 STUK, 10 MG
     Dates: start: 20200909
  6. MOVICOLON [Concomitant]
     Active Substance: POLYETHYLENE GLYCOL 3350\POTASSIUM CHLORIDE\SODIUM BICARBONATE\SODIUM CHLORIDE
     Dosage: POEDER VOOR DRANK
  7. CLOZAPINE. [Concomitant]
     Active Substance: CLOZAPINE
     Dosage: TABLET, 100 MG (MILLIGRAM)
  8. LORAZEPAM. [Concomitant]
     Active Substance: LORAZEPAM
     Dosage: TABLET, 1 MG (MILLIGRAM)
  9. PROMETHAZINE [Concomitant]
     Active Substance: PROMETHAZINE HYDROCHLORIDE
     Dosage: OMHULDE TABLET, 25 MG (MILLIGRAM)
  10. ABASAGLAR [Concomitant]
     Active Substance: INSULIN GLARGINE
     Dosage: 1 MAAL DAAGS 20 E

REACTIONS (2)
  - Bradycardia [Not Recovered/Not Resolved]
  - Cardiac arrest [Not Recovered/Not Resolved]

NARRATIVE: CASE EVENT DATE: 20200911
